FAERS Safety Report 23292247 (Version 1)
Quarter: 2023Q4

REPORT INFORMATION
  Report Type: Spontaneous
  Country: US (occurrence: None)
  Receive Date: 20231212
  Receipt Date: 20231212
  Transmission Date: 20240109
  Serious: Yes (Hospitalization)
  Sender: FDA-Public Use
  Company Number: None

PATIENT
  Sex: Male

DRUGS (15)
  1. NUCALA [Suspect]
     Active Substance: MEPOLIZUMAB
     Route: 058
  2. CARB/LEVO [Concomitant]
  3. FUROSEMIDE [Concomitant]
  4. GABAPENTIN CAP [Concomitant]
  5. HYDROCO/APAP [Concomitant]
  6. LEVALBUTEROL NEB [Concomitant]
  7. LIDOCAINE PAD 4% [Concomitant]
  8. LOSARTAN POT TAB 100MG [Concomitant]
  9. METHOCARBAM TAB 750MG [Concomitant]
  10. MONTELUKAST TAB 10MG [Concomitant]
  11. OMEPRAZOLE CAP 20MG [Concomitant]
  12. PRAMIPEXOLE TAB 1MG [Concomitant]
  13. STIOLTO AER [Concomitant]
  14. SYMBICORT AER [Concomitant]
  15. TAMSULOSIN CAP 0.4MG [Concomitant]

REACTIONS (1)
  - Spinal operation [None]
